FAERS Safety Report 23213888 (Version 2)
Quarter: 2023Q4

REPORT INFORMATION
  Report Type: Report from Study
  Country: US (occurrence: US)
  Receive Date: 20231121
  Receipt Date: 20231124
  Transmission Date: 20240109
  Serious: Yes (Other)
  Sender: FDA-Public Use
  Company Number: US-ABBVIE-5496700

PATIENT
  Age: 78 Year
  Sex: Male
  Weight: 102 kg

DRUGS (2)
  1. SKYRIZI [Suspect]
     Active Substance: RISANKIZUMAB-RZAA
     Indication: Crohn^s disease
     Dosage: FORM STRENGTH: 360 MILLIGRAM
     Route: 058
     Dates: start: 202209
  2. LOSARTAN [Concomitant]
     Active Substance: LOSARTAN
     Indication: Blood pressure management

REACTIONS (8)
  - Circumcision [Unknown]
  - Dysstasia [Recovered/Resolved]
  - Infection [Recovered/Resolved]
  - Immunodeficiency [Unknown]
  - Dysuria [Recovered/Resolved]
  - Dysuria [Recovered/Resolved]
  - Prostatic specific antigen increased [Recovering/Resolving]
  - Urinary retention [Unknown]

NARRATIVE: CASE EVENT DATE: 20230801
